FAERS Safety Report 25621420 (Version 2)
Quarter: 2025Q3

REPORT INFORMATION
  Report Type: Spontaneous
  Country: JP (occurrence: JP)
  Receive Date: 20250730
  Receipt Date: 20250902
  Transmission Date: 20251021
  Serious: Yes (Hospitalization, Other)
  Sender: SUNOVION
  Company Number: JP-SMPA-2025SPA009731AA

PATIENT
  Age: 28 Year
  Sex: Female

DRUGS (5)
  1. VIBEGRON [Suspect]
     Active Substance: VIBEGRON
     Indication: Hypertonic bladder
     Route: 048
     Dates: start: 20250717, end: 20250717
  2. LEVOFLOXACIN [Concomitant]
     Active Substance: LEVOFLOXACIN
     Dosage: 500 MG, QD
     Route: 048
     Dates: start: 20250712, end: 20250716
  3. MIYA-BM [Concomitant]
     Active Substance: CLOSTRIDIUM BUTYRICUM SPORES STRAIN M-55
     Dosage: 60 MG, QD
     Route: 048
     Dates: start: 20250712, end: 20250716
  4. DIENOGEST [Concomitant]
     Active Substance: DIENOGEST
     Dosage: 1 MG, QD
     Route: 048
  5. Ogonto [Concomitant]
     Dosage: 7.5 G, QD
     Route: 048
     Dates: start: 20250712, end: 20250714

REACTIONS (1)
  - Anaphylactic shock [Recovering/Resolving]

NARRATIVE: CASE EVENT DATE: 20250717
